FAERS Safety Report 5076217-2 (Version None)
Quarter: 2006Q3

REPORT INFORMATION
  Report Type: 
  Country: None (occurrence: None)
  Receive Date: 20060807
  Receipt Date: 20060724
  Transmission Date: 20061208
  Serious: Yes (Other)
  Sender: FDA-Public Use
  Company Number: US200607001559

PATIENT
  Age: 70 Year
  Sex: Female

DRUGS (1)
  1. EVISTA [Suspect]
     Indication: OSTEOPOROSIS
     Dates: start: 20060703

REACTIONS (2)
  - EYE HAEMORRHAGE [None]
  - HOT FLUSH [None]
